FAERS Safety Report 8665500 (Version 3)
Quarter: 2012Q4

REPORT INFORMATION
  Report Type: 
  Country: JP (occurrence: JP)
  Receive Date: 20120716
  Receipt Date: 20121126
  Transmission Date: 20130627
  Serious: Yes (Death)
  Sender: FDA-Public Use
  Company Number: JP-MPIJNJ-2012-04742

PATIENT

DRUGS (15)
  1. VELCADE [Suspect]
     Indication: MULTIPLE MYELOMA
     Dosage: 1.1 mg, UNK
     Route: 042
     Dates: start: 20120517, end: 20120524
  2. MELPHALAN [Suspect]
     Dosage: 6 mg, UNK
     Route: 048
     Dates: start: 20120517, end: 20120520
  3. PREDONINE                          /00016201/ [Concomitant]
     Indication: MULTIPLE MYELOMA
     Dosage: 40 mg, UNK
     Route: 048
     Dates: start: 20120517, end: 20120520
  4. ZOMETA [Concomitant]
     Indication: HYPERCALCAEMIA
     Dosage: 4 mg, UNK
     Route: 042
     Dates: start: 20120514, end: 20120514
  5. ALOSITOL [Concomitant]
     Indication: HYPERURICAEMIA
     Dosage: 50 mg, UNK
     Route: 048
     Dates: start: 20120503, end: 20120607
  6. TAKEPRON [Concomitant]
     Indication: GASTROOESOPHAGEAL REFLUX DISEASE
     Dosage: 15 mg, UNK
     Route: 048
     Dates: start: 20120512, end: 20120613
  7. LASIX                              /00032601/ [Concomitant]
     Indication: RENAL FAILURE CHRONIC
     Dosage: 40 mg, UNK
     Route: 048
     Dates: start: 20120521, end: 20120601
  8. AMLODIPINE BESILATE [Concomitant]
     Indication: HYPERTENSION
     Dosage: 5 mg, UNK
     Route: 048
     Dates: start: 20120601, end: 20120618
  9. ONON [Concomitant]
     Indication: PRURITUS
     Dosage: 112.5 mg, UNK
     Route: 048
     Dates: start: 20120601, end: 20120608
  10. ALLELOCK [Concomitant]
     Indication: PRURITUS
     Dosage: 5 mg, UNK
     Route: 048
     Dates: start: 20120601, end: 20120608
  11. PANTOSIN [Concomitant]
     Indication: CONSTIPATION
     Dosage: 600 mg, UNK
     Route: 048
     Dates: start: 20120602, end: 20120617
  12. MAGMITT [Concomitant]
     Indication: CONSTIPATION
     Dosage: 1500 mg, UNK
     Route: 048
     Dates: start: 20120602, end: 20120617
  13. PURSENNID /00142207/ [Concomitant]
     Indication: CONSTIPATION
     Dosage: 24 mg, UNK
     Route: 048
     Dates: start: 20120604, end: 20120604
  14. NESP [Concomitant]
     Indication: NEPHROGENIC ANAEMIA
     Dosage: 30 mg, UNK
     Route: 058
     Dates: start: 20120614, end: 20120614
  15. SERENACE [Concomitant]
     Indication: DELIRIUM
     Dosage: 5 mg, UNK
     Route: 042
     Dates: start: 20120616, end: 20120616

REACTIONS (3)
  - Plasma cell myeloma [Fatal]
  - Renal failure [Fatal]
  - Hepatic failure [Fatal]
